FAERS Safety Report 17148609 (Version 1)
Quarter: 2019Q4

REPORT INFORMATION
  Report Type: Spontaneous
  Country: US (occurrence: US)
  Receive Date: 20191213
  Receipt Date: 20191213
  Transmission Date: 20200122
  Serious: No
  Sender: FDA-Public Use
  Company Number: US-GLAXOSMITHKLINE-US2019225500

PATIENT

DRUGS (3)
  1. ALLI [Suspect]
     Active Substance: ORLISTAT
     Indication: WEIGHT LOSS DIET
     Dosage: UNK (USE COUPLE OF WEEKS)
  2. ALLI [Suspect]
     Active Substance: ORLISTAT
     Indication: SUPPLEMENTATION THERAPY
  3. ALLI [Suspect]
     Active Substance: ORLISTAT
     Indication: BOWEL MOVEMENT IRREGULARITY

REACTIONS (2)
  - Weight increased [Unknown]
  - Drug ineffective [Unknown]
